FAERS Safety Report 13306413 (Version 2)
Quarter: 2017Q1

REPORT INFORMATION
  Report Type: Spontaneous
  Country: CA (occurrence: CA)
  Receive Date: 20170308
  Receipt Date: 20170326
  Transmission Date: 20170428
  Serious: Yes (Other)
  Sender: FDA-Public Use
  Company Number: CA-AMGEN-CANSP2017031193

PATIENT
  Age: 78 Year
  Sex: Female

DRUGS (8)
  1. HUMIRA [Suspect]
     Active Substance: ADALIMUMAB
     Indication: PRODUCT USED FOR UNKNOWN INDICATION
     Dosage: UNK
     Route: 065
  2. ENBREL [Suspect]
     Active Substance: ETANERCEPT
     Indication: RHEUMATOID ARTHRITIS
     Dosage: UNK
     Route: 065
     Dates: start: 20160923, end: 20170224
  3. VALSARTAN. [Concomitant]
     Active Substance: VALSARTAN
     Indication: HYPERTENSION
     Dosage: UNK
  4. METHOTREXATE. [Suspect]
     Active Substance: METHOTREXATE
     Indication: RHEUMATOID ARTHRITIS
     Dosage: 25 MG, QWK
     Route: 065
     Dates: start: 20110309
  5. HYDROMORPHONE [Concomitant]
     Active Substance: HYDROMORPHONE
     Dosage: 1 MG, AS NECESSARY
     Route: 065
  6. ORENCIA [Suspect]
     Active Substance: ABATACEPT
     Indication: PRODUCT USED FOR UNKNOWN INDICATION
     Dosage: UNK
     Route: 065
  7. PREDNISONE. [Concomitant]
     Active Substance: PREDNISONE
     Dosage: 5 MG, QD
  8. CORTISONE [Concomitant]
     Active Substance: CORTISONE\HYDROCORTISONE
     Dosage: UNK

REACTIONS (3)
  - Rheumatoid arthritis [Recovering/Resolving]
  - Hypertension [Unknown]
  - Drug ineffective [Unknown]

NARRATIVE: CASE EVENT DATE: 20170217
